FAERS Safety Report 6195840-5 (Version None)
Quarter: 2009Q2

REPORT INFORMATION
  Report Type: 
  Country: None (occurrence: None)
  Receive Date: 20090520
  Receipt Date: 20080313
  Transmission Date: 20091009
  Serious: Yes (Death, Hospitalization)
  Sender: FDA-Public Use
  Company Number: US-ASTRAZENECA-2006UW27356

PATIENT
  Age: 48 Year
  Sex: Female
  Weight: 73.9 kg

DRUGS (15)
  1. SEROQUEL [Suspect]
     Indication: BIPOLAR DISORDER
     Route: 048
     Dates: start: 19990101
  2. SEROQUEL [Suspect]
     Indication: DEPRESSION
     Route: 048
     Dates: start: 19990101
  3. SEROQUEL [Suspect]
     Dosage: 50-200 MG
     Route: 048
     Dates: start: 20021011
  4. SEROQUEL [Suspect]
     Dosage: 50-200 MG
     Route: 048
     Dates: start: 20021011
  5. CLOZARIL [Concomitant]
  6. WELLBUTRIN [Concomitant]
     Dates: start: 19850101, end: 20060101
  7. CLONAZEPAM [Concomitant]
     Dates: start: 19850101, end: 20060101
  8. SEPTRA [Concomitant]
  9. WELLBUTRIN SR [Concomitant]
  10. TOPAMAX [Concomitant]
  11. LEXAPRO [Concomitant]
  12. KLONOPIN [Concomitant]
  13. PROTONIX [Concomitant]
  14. MORPHINE [Concomitant]
  15. LOPRESSOR [Concomitant]

REACTIONS (22)
  - ANAEMIA [None]
  - CHEST PAIN [None]
  - DUODENITIS [None]
  - DYSPHAGIA [None]
  - FIBROMYALGIA [None]
  - GASTROENTERITIS [None]
  - GASTROOESOPHAGEAL REFLUX DISEASE [None]
  - HAEMORRHOIDS [None]
  - HYPERCHOLESTEROLAEMIA [None]
  - HYPOACUSIS [None]
  - HYPOKALAEMIA [None]
  - LOCAL SWELLING [None]
  - MOOD SWINGS [None]
  - OESOPHAGEAL CANDIDIASIS [None]
  - PAIN [None]
  - PAIN IN EXTREMITY [None]
  - PANCREATITIS [None]
  - PANCREATITIS ACUTE [None]
  - PANIC ATTACK [None]
  - PNEUMONIA [None]
  - URINARY TRACT INFECTION [None]
  - VAGINAL SWELLING [None]
